FAERS Safety Report 12946557 (Version 5)
Quarter: 2017Q1

REPORT INFORMATION
  Report Type: Spontaneous
  Country: JP (occurrence: JP)
  Receive Date: 20161116
  Receipt Date: 20170323
  Transmission Date: 20170428
  Serious: Yes (Hospitalization)
  Sender: FDA-Public Use
  Company Number: PHHY2016JP156768

PATIENT
  Age: 44 Year
  Sex: Female
  Weight: 93 kg

DRUGS (13)
  1. TIZANIDINE HYDROCHLORIDE. [Concomitant]
     Active Substance: TIZANIDINE HYDROCHLORIDE
     Indication: HEADACHE
     Dosage: 2 MG, QD
     Route: 048
     Dates: start: 20150423
  2. MOHRUS [Concomitant]
     Active Substance: KETOPROFEN
     Indication: BACK PAIN
     Dosage: 2 DF, QD
     Route: 061
     Dates: start: 20160114
  3. CALONAL [Concomitant]
     Active Substance: ACETAMINOPHEN
     Dosage: 600 MG, QD PRN
     Route: 048
     Dates: start: 20161107
  4. MECOBALAMIN [Concomitant]
     Active Substance: METHYLCOBALAMIN
     Indication: MULTIPLE SCLEROSIS
     Dosage: 1500 UG, QD
     Route: 048
     Dates: start: 20150423
  5. STICKZENOL A [Concomitant]
     Indication: BACK PAIN
     Route: 061
     Dates: start: 20160114
  6. BONOTEO [Concomitant]
     Active Substance: MINODRONIC ACID
     Indication: OSTEOPOROSIS PROPHYLAXIS
     Dosage: 50 MG, QW
     Route: 048
     Dates: start: 20150514
  7. IMUSERA [Suspect]
     Active Substance: FINGOLIMOD HYDROCHLORIDE
     Indication: MULTIPLE SCLEROSIS
     Dosage: 0.5 MG, QD
     Route: 048
     Dates: start: 20150609, end: 20161108
  8. CRAVIT [Concomitant]
     Active Substance: LEVOFLOXACIN
     Indication: URINARY TRACT INFECTION
     Dosage: 500 MG, QD
     Route: 048
     Dates: start: 20161107
  9. NEXIUM [Concomitant]
     Active Substance: ESOMEPRAZOLE MAGNESIUM
     Indication: PROPHYLAXIS AGAINST GASTROINTESTINAL ULCER
     Dosage: 20 MG, QD
     Route: 048
     Dates: start: 20150528
  10. LOBU [Concomitant]
     Active Substance: LOBUCAVIR
     Indication: HEADACHE
     Dosage: 60 MG, QD (PRN)
     Route: 048
     Dates: start: 20151210
  11. CALONAL [Concomitant]
     Active Substance: ACETAMINOPHEN
     Indication: PYREXIA
     Dosage: 200 MG, UNK
     Route: 048
     Dates: start: 20161104, end: 20161106
  12. LIPIDIL [Concomitant]
     Active Substance: FENOFIBRATE
     Indication: HYPERLIPIDAEMIA
     Dosage: 106.6 MG, QD
     Route: 048
     Dates: start: 20150519
  13. SANCOBA [Concomitant]
     Active Substance: CYANOCOBALAMIN
     Indication: ASTHENOPIA
     Dosage: (SEVERAL TIMES/DAY)
     Route: 031
     Dates: start: 20150723

REACTIONS (1)
  - Histiocytosis haematophagic [Recovering/Resolving]

NARRATIVE: CASE EVENT DATE: 20161107
